FAERS Safety Report 16070211 (Version 1)
Quarter: 2019Q1

REPORT INFORMATION
  Report Type: Spontaneous
  Country: RU (occurrence: RU)
  Receive Date: 20190314
  Receipt Date: 20190314
  Transmission Date: 20190418
  Serious: Yes (Other)
  Sender: FDA-Public Use
  Company Number: RU-TEVA-2019-RU-1021208

PATIENT
  Age: 87 Year
  Sex: Female

DRUGS (2)
  1. FINLEPSIN [Suspect]
     Active Substance: CARBAMAZEPINE
     Dosage: 400 MILLIGRAM DAILY;
  2. KETONAL [Concomitant]
     Active Substance: KETOPROFEN
     Route: 065

REACTIONS (4)
  - Angina pectoris [Recovered/Resolved]
  - Headache [Recovered/Resolved]
  - Hallucination [Recovered/Resolved]
  - Atrial fibrillation [Recovered/Resolved]
